FAERS Safety Report 7677017-7 (Version None)
Quarter: 2011Q3

REPORT INFORMATION
  Report Type: 
  Country: None (occurrence: None)
  Receive Date: 20110811
  Receipt Date: 20110805
  Transmission Date: 20111222
  Serious: Yes (Other)
  Sender: FDA-Public Use
  Company Number: US-ABBOTT-11P-163-0844639-00

PATIENT
  Age: 47 Year
  Sex: Female

DRUGS (5)
  1. HUMIRA [Suspect]
     Indication: PSORIASIS
     Dates: start: 20110501, end: 20110701
  2. EFFEXOR [Concomitant]
     Indication: ANXIETY
     Route: 048
  3. NITROFURANTOIN [Concomitant]
     Indication: PROPHYLAXIS URINARY TRACT INFECTION
  4. HUMIRA [Suspect]
     Dates: start: 20110728
  5. MULTI-VITAMIN [Concomitant]
     Indication: VITAMIN SUPPLEMENTATION
     Dosage: DAILY
     Route: 048

REACTIONS (3)
  - UTERINE HAEMORRHAGE [None]
  - PAIN [None]
  - UTERINE LEIOMYOMA [None]
